FAERS Safety Report 5942134-6 (Version None)
Quarter: 2008Q4

REPORT INFORMATION
  Report Type: 
  Country: None (occurrence: None)
  Receive Date: 20081105
  Receipt Date: 20080304
  Transmission Date: 20090506
  Serious: Yes (Death, Other)
  Sender: FDA-Public Use
  Company Number: US-JNJFOC-20080302553

PATIENT

DRUGS (1)
  1. DORIBAX [Suspect]
     Indication: INFECTION
     Route: 042

REACTIONS (2)
  - DRUG RESISTANCE [None]
  - LEUKAEMIA [None]
